FAERS Safety Report 8501333-X (Version None)
Quarter: 2012Q3

REPORT INFORMATION
  Report Type: 
  Country: None (occurrence: None)
  Receive Date: 20120710
  Receipt Date: 20120627
  Transmission Date: 20120928
  Serious: No
  Sender: FDA-Public Use
  Company Number: US-ASTRAZENECA-2012SE43679

PATIENT
  Sex: Female

DRUGS (1)
  1. CRESTOR [Suspect]
     Indication: LOW DENSITY LIPOPROTEIN INCREASED
     Route: 048

REACTIONS (4)
  - WEIGHT INCREASED [None]
  - HEPATIC STEATOSIS [None]
  - ENDOMETRIOSIS [None]
  - HEPATIC ENZYME INCREASED [None]
